FAERS Safety Report 19733026 (Version 2)
Quarter: 2021Q4

REPORT INFORMATION
  Report Type: Other
  Country: US (occurrence: US)
  Receive Date: 20210823
  Receipt Date: 20211125
  Transmission Date: 20220303
  Serious: Yes (Other)
  Sender: FDA-Public Use
  Company Number: US-INTERCEPT-PM2021002473

PATIENT
  Sex: Female
  Weight: 92.971 kg

DRUGS (18)
  1. OCALIVA [Suspect]
     Active Substance: OBETICHOLIC ACID
     Indication: Primary biliary cholangitis
     Dosage: 5 MILLIGRAM, QD
     Route: 048
     Dates: start: 20201106
  2. ACTIGALL [Concomitant]
     Active Substance: URSODIOL
     Dosage: 500 MILLIGRAM, TID
  3. GLUCOPHAGE [Concomitant]
     Active Substance: METFORMIN HYDROCHLORIDE
  4. PEPTO-BISMOL [Concomitant]
     Active Substance: BISMUTH SUBSALICYLATE
  5. TYLENOL [Concomitant]
     Active Substance: ACETAMINOPHEN
  6. NORVASC [Concomitant]
     Active Substance: AMLODIPINE BESYLATE
  7. LIPITOR [Concomitant]
     Active Substance: ATORVASTATIN CALCIUM
  8. FLEXERIL [Concomitant]
     Active Substance: CYCLOBENZAPRINE HYDROCHLORIDE
  9. DICLOFENAC SODIUM [Concomitant]
     Active Substance: DICLOFENAC SODIUM
  10. IRON [Concomitant]
     Active Substance: IRON
  11. GLUCOTROL [Concomitant]
     Active Substance: GLIPIZIDE
  12. NAPROSYN [Concomitant]
     Active Substance: NAPROXEN
  13. NITROGLYCERIN [Concomitant]
     Active Substance: NITROGLYCERIN
  14. ISOTONIX COENZYME Q10 [Concomitant]
  15. HERBALS\PLANTAGO INDICA WHOLE [Concomitant]
     Active Substance: HERBALS\PLANTAGO INDICA WHOLE
  16. ZOLOFT [Concomitant]
     Active Substance: SERTRALINE HYDROCHLORIDE
  17. KENALOG [Concomitant]
     Active Substance: TRIAMCINOLONE ACETONIDE
  18. COVID-19 VACCINE [Concomitant]
     Dosage: UNK

REACTIONS (5)
  - Diabetes mellitus [Unknown]
  - Skin exfoliation [Unknown]
  - Dry skin [Unknown]
  - Fatigue [Unknown]
  - Pruritus [Not Recovered/Not Resolved]
